FAERS Safety Report 8953170 (Version 1)
Quarter: 2012Q4

REPORT INFORMATION
  Report Type: 
  Country: NL (occurrence: NL)
  Receive Date: 20121205
  Receipt Date: 20121205
  Transmission Date: 20130627
  Serious: Yes (Other)
  Sender: FDA-Public Use
  Company Number: NL-AMGEN-NLDSP2012077785

PATIENT
  Sex: Female

DRUGS (4)
  1. ENBREL [Suspect]
     Indication: RHEUMATOID ARTHRITIS
     Dosage: 25 mg, weekly
     Dates: start: 2006
  2. ENBREL [Suspect]
     Dosage: 50 mg, weekly
  3. ENBREL [Suspect]
     Dosage: 50 mg, once every two weeks
  4. MTX                                /00113801/ [Concomitant]
     Dosage: UNK UNK, UNK

REACTIONS (1)
  - Rheumatoid arthritis [Not Recovered/Not Resolved]
